FAERS Safety Report 6969548-X (Version None)
Quarter: 2010Q3

REPORT INFORMATION
  Report Type: 
  Country: None (occurrence: None)
  Receive Date: 20100907
  Receipt Date: 20100907
  Transmission Date: 20110219
  Serious: No
  Sender: FDA-Public Use
  Company Number: None

PATIENT
  Age: 78 Year
  Sex: Female
  Weight: 88.905 kg

DRUGS (1)
  1. ZOCOR [Suspect]
     Indication: LOW DENSITY LIPOPROTEIN INCREASED
     Dosage: 20 MG 1 EVERY OTHER DAY PO
     Route: 048
     Dates: start: 20100831, end: 20100903

REACTIONS (4)
  - ABDOMINAL PAIN UPPER [None]
  - FORMICATION [None]
  - PARAESTHESIA [None]
  - PRURITUS [None]
